FAERS Safety Report 6129353-3 (Version None)
Quarter: 2009Q1

REPORT INFORMATION
  Report Type: 
  Country: None (occurrence: None)
  Receive Date: 20090323
  Receipt Date: 20090323
  Transmission Date: 20090719
  Serious: Yes (Other)
  Sender: FDA-Public Use
  Company Number: None

PATIENT
  Age: 48 Year
  Sex: Female
  Weight: 136.0791 kg

DRUGS (1)
  1. CHANTIX [Suspect]
     Indication: SMOKING CESSATION THERAPY
     Dosage: 1 PILL 2 X DAILY PO
     Route: 048
     Dates: start: 20090222, end: 20090314

REACTIONS (2)
  - IMPAIRED DRIVING ABILITY [None]
  - SOMNOLENCE [None]
